FAERS Safety Report 12272322 (Version 2)
Quarter: 2016Q2

REPORT INFORMATION
  Report Type: Spontaneous
  Country: FR (occurrence: FR)
  Receive Date: 20160415
  Receipt Date: 20160530
  Transmission Date: 20160815
  Serious: Yes (Hospitalization, Other)
  Sender: FDA-Public Use
  Company Number: FR-009507513-1604FRA004518

PATIENT
  Age: 31 Year
  Sex: Female

DRUGS (4)
  1. PUREGON [Suspect]
     Active Substance: FOLLITROPIN
     Indication: IN VITRO FERTILISATION
     Dosage: 200 IU, UNK (DURING 4 DAYS)
     Route: 058
     Dates: end: 2015
  2. OVITRELLE [Suspect]
     Active Substance: CHORIOGONADOTROPIN ALFA
     Indication: IN VITRO FERTILISATION
     Dosage: UNK
     Route: 058
     Dates: start: 20151021
  3. DECAPEPTYL (ACETATE) [Suspect]
     Active Substance: TRIPTORELIN ACETATE
     Indication: IN VITRO FERTILISATION
     Dosage: 3 MG,  (SUSTAINED RELEASE)
     Route: 030
     Dates: start: 201510
  4. PUREGON [Suspect]
     Active Substance: FOLLITROPIN
     Dosage: 225 IU, UNK (DURING 7 DAYS)
     Dates: start: 2015, end: 2015

REACTIONS (2)
  - Ovarian hyperstimulation syndrome [Recovered/Resolved]
  - Ascites [Recovered/Resolved]

NARRATIVE: CASE EVENT DATE: 20151026
